FAERS Safety Report 20430904 (Version 1)
Quarter: 2022Q1

REPORT INFORMATION
  Report Type: Spontaneous
  Country: US (occurrence: US)
  Receive Date: 20220204
  Receipt Date: 20220204
  Transmission Date: 20220424
  Serious: No
  Sender: FDA-Public Use
  Company Number: US-OYSTER POINT PHARMA, INC.-2021OYS00086

PATIENT
  Sex: Female
  Weight: 58.05 kg

DRUGS (5)
  1. TYRVAYA [Suspect]
     Active Substance: VARENICLINE TARTRATE
     Indication: Dry eye
     Dosage: UNK SAMPLES
     Route: 045
  2. TYRVAYA [Suspect]
     Active Substance: VARENICLINE TARTRATE
     Dosage: UNK SAMPLES ^DAB ON MY FINGER AND PUTTING THAT IN MY NOSE^
     Route: 045
  3. ASPIRIN [Concomitant]
     Active Substance: ASPIRIN
  4. VALSARTAN [Concomitant]
     Active Substance: VALSARTAN
  5. ATORVASTATIN [Concomitant]
     Active Substance: ATORVASTATIN

REACTIONS (7)
  - Paranasal sinus discomfort [Recovered/Resolved]
  - Abdominal pain upper [Recovered/Resolved]
  - Dyspnoea [Recovered/Resolved]
  - Nasal discomfort [Recovered/Resolved]
  - Sneezing [Recovered/Resolved]
  - Throat irritation [Recovered/Resolved]
  - Intentional product misuse [Recovered/Resolved]
